FAERS Safety Report 5394291-0 (Version None)
Quarter: 2007Q3

REPORT INFORMATION
  Report Type: 
  Country: None (occurrence: None)
  Receive Date: 20070723
  Receipt Date: 20070522
  Transmission Date: 20080115
  Serious: No
  Sender: FDA-Public Use
  Company Number: A0652438A

PATIENT
  Sex: Female

DRUGS (6)
  1. AVANDIA [Suspect]
     Dosage: 4MG TWICE PER DAY
     Route: 048
     Dates: start: 20050101, end: 20070522
  2. TRAMADOL HCL [Concomitant]
  3. XANAX [Concomitant]
  4. LOTREL [Concomitant]
  5. EFFEXOR [Concomitant]
  6. LETROZOLE [Concomitant]

REACTIONS (2)
  - HEART RATE INCREASED [None]
  - PALPITATIONS [None]
